FAERS Safety Report 9550454 (Version 2)
Quarter: 2020Q1

REPORT INFORMATION
  Report Type: Report from Study
  Country: US (occurrence: US)
  Receive Date: 20130924
  Receipt Date: 20200331
  Transmission Date: 20200409
  Serious: No
  Sender: FDA-Public Use
  Company Number: US-SANOFI-AVENTIS-2013SA078958

PATIENT
  Age: 41 Year
  Sex: Female

DRUGS (1)
  1. TERIFLUNOMIDE. [Suspect]
     Active Substance: TERIFLUNOMIDE
     Indication: MULTIPLE SCLEROSIS
     Dosage: 14 MG,QD
     Route: 048
     Dates: start: 20130614

REACTIONS (8)
  - Stress [Not Recovered/Not Resolved]
  - Unevaluable event [Unknown]
  - Product dose omission [Unknown]
  - Anxiety [Not Recovered/Not Resolved]
  - Hypoaesthesia [Not Recovered/Not Resolved]
  - Memory impairment [Unknown]
  - Depression [Not Recovered/Not Resolved]
  - Alopecia [Unknown]

NARRATIVE: CASE EVENT DATE: 20130715
